FAERS Safety Report 11892741 (Version 1)
Quarter: 2016Q1

REPORT INFORMATION
  Report Type: Spontaneous
  Country: IN (occurrence: IN)
  Receive Date: 20160106
  Receipt Date: 20160106
  Transmission Date: 20160526
  Serious: Yes (Other)
  Sender: FDA-Public Use
  Company Number: IN-IPCA LABORATORIES LIMITED-E2B_00000004

PATIENT
  Age: 7 Year
  Sex: Male

DRUGS (2)
  1. CHLOROQUINE PHOSPHATE. [Suspect]
     Active Substance: CHLOROQUINE PHOSPHATE
     Indication: MALARIA
     Dosage: UNK
  2. PRIMAQUINE [Suspect]
     Active Substance: PRIMAQUINE PHOSPHATE
     Indication: MALARIA
     Dosage: UNK

REACTIONS (3)
  - Glucose-6-phosphate dehydrogenase deficiency [Unknown]
  - Haemolysis [Unknown]
  - Methaemoglobinaemia [Unknown]
